FAERS Safety Report 9525702 (Version 2)
Quarter: 2013Q3

REPORT INFORMATION
  Report Type: Spontaneous
  Country: CN (occurrence: CN)
  Receive Date: 20130916
  Receipt Date: 20130918
  Transmission Date: 20140515
  Serious: Yes (Other)
  Sender: FDA-Public Use
  Company Number: CN-ROCHE-1274727

PATIENT
  Sex: Male

DRUGS (3)
  1. HERCEPTIN [Suspect]
     Indication: GASTRIC CANCER
     Route: 041
     Dates: start: 20130831, end: 20130901
  2. XELODA [Suspect]
     Indication: GASTRIC CANCER
     Route: 048
     Dates: start: 20130831, end: 20130901
  3. OXALIPLATIN [Concomitant]
     Indication: GASTRIC CANCER
     Route: 041
     Dates: start: 20130831, end: 20130901

REACTIONS (1)
  - Gastrointestinal haemorrhage [Recovered/Resolved]
